FAERS Safety Report 18594722 (Version 1)
Quarter: 2020Q4

REPORT INFORMATION
  Report Type: Spontaneous
  Country: DE (occurrence: DE)
  Receive Date: 20201209
  Receipt Date: 20201209
  Transmission Date: 20210114
  Serious: Yes (Death, Life-Threatening, Hospitalization, Other)
  Sender: FDA-Public Use
  Company Number: DE-AMGEN-DEUSP2020196547

PATIENT

DRUGS (8)
  1. CYTARABINE. [Suspect]
     Active Substance: CYTARABINE
     Indication: ACUTE MYELOID LEUKAEMIA RECURRENT
     Dosage: 2 GRAM PER SQUARE METRE, QD, FOR 5 DAYS
     Route: 065
  2. CYTARABINE. [Suspect]
     Active Substance: CYTARABINE
     Indication: ACUTE MYELOID LEUKAEMIA REFRACTORY
  3. ETOPOSIDE. [Suspect]
     Active Substance: ETOPOSIDE
     Indication: ACUTE MYELOID LEUKAEMIA RECURRENT
     Dosage: 150 MILLIGRAM/SQ. METER, QD, ON DAY 3
     Route: 065
  4. FLUDARABINE [Suspect]
     Active Substance: FLUDARABINE PHOSPHATE
     Indication: ACUTE MYELOID LEUKAEMIA RECURRENT
     Dosage: 30 MILLIGRAM/SQ. METER, QD
     Route: 065
  5. FLUDARABINE [Suspect]
     Active Substance: FLUDARABINE PHOSPHATE
     Indication: ACUTE MYELOID LEUKAEMIA REFRACTORY
  6. ETOPOSIDE. [Suspect]
     Active Substance: ETOPOSIDE
     Indication: ACUTE MYELOID LEUKAEMIA REFRACTORY
  7. FILGRASTIM [Suspect]
     Active Substance: FILGRASTIM
     Indication: ACUTE MYELOID LEUKAEMIA RECURRENT
     Dosage: UNK, ONE DAY PRIOR TO CHEMOTHERAPY FOR 6 DAYS
     Route: 065
  8. FILGRASTIM [Suspect]
     Active Substance: FILGRASTIM
     Indication: ACUTE MYELOID LEUKAEMIA REFRACTORY

REACTIONS (19)
  - Aplasia [Fatal]
  - Pneumonia [Fatal]
  - Nephropathy toxic [Unknown]
  - Myocardial infarction [Unknown]
  - Death [Fatal]
  - Infection [Fatal]
  - Haemorrhage [Unknown]
  - Diarrhoea [Unknown]
  - Acute myeloid leukaemia recurrent [Fatal]
  - Hospitalisation [Unknown]
  - Arrhythmia [Unknown]
  - Central nervous system leukaemia [Fatal]
  - Ejection fraction decreased [Unknown]
  - Mucosal inflammation [Unknown]
  - Pyrexia [Unknown]
  - Drug ineffective [Unknown]
  - Therapeutic product effect incomplete [Unknown]
  - Sepsis [Fatal]
  - Hepatotoxicity [Unknown]
